FAERS Safety Report 4622798-X (Version None)
Quarter: 2005Q1

REPORT INFORMATION
  Report Type: 
  Country: None (occurrence: None)
  Receive Date: 20050329
  Receipt Date: 20050329
  Transmission Date: 20050727
  Serious: Yes (Life-Threatening)
  Sender: FDA-Public Use
  Company Number: None

PATIENT
  Age: 52 Year
  Sex: Female

DRUGS (4)
  1. TOPROL-XL [Suspect]
     Indication: BLOOD PRESSURE
     Dosage: ONE BY MOUTH DAILY
     Route: 048
     Dates: start: 20050110
  2. TOPROL-XL [Suspect]
     Indication: BLOOD PRESSURE
     Dosage: ONE BY MOUTH DAILY
     Route: 048
     Dates: start: 20050207
  3. TOPROL-XL [Suspect]
     Indication: BLOOD PRESSURE
     Dosage: ONE BY MOUTH DAILY
     Route: 048
     Dates: start: 20050217
  4. LIPITOR [Concomitant]

REACTIONS (3)
  - BLOOD PRESSURE INCREASED [None]
  - HEADACHE [None]
  - PHARMACEUTICAL PRODUCT COMPLAINT [None]
